FAERS Safety Report 20827624 (Version 1)
Quarter: 2022Q2

REPORT INFORMATION
  Report Type: Spontaneous
  Country: US (occurrence: None)
  Receive Date: 20220513
  Receipt Date: 20220513
  Transmission Date: 20220721
  Serious: Yes (Other)
  Sender: FDA-Public Use
  Company Number: None

PATIENT
  Sex: Female

DRUGS (2)
  1. CYCLOPHOSPHAMIDE [Suspect]
     Active Substance: CYCLOPHOSPHAMIDE
     Indication: Idiopathic pulmonary fibrosis
     Dosage: 100MG DAILY BY MOUTH?
     Route: 048
     Dates: start: 20220418
  2. CYCLOPHOSPHAMIDE [Suspect]
     Active Substance: CYCLOPHOSPHAMIDE
     Indication: Idiopathic pulmonary fibrosis
     Dosage: 25MG DAILY BY MOUTH
     Route: 048
     Dates: start: 20220419

REACTIONS (2)
  - Nausea [None]
  - Fatigue [None]
